FAERS Safety Report 9954186 (Version 1)
Quarter: 2014Q1

REPORT INFORMATION
  Report Type: Report from Study
  Country: US (occurrence: US)
  Receive Date: 20140304
  Receipt Date: 20140304
  Transmission Date: 20141002
  Serious: No
  Sender: FDA-Public Use
  Company Number: US-ABBVIE-13P-163-1074553-00

PATIENT
  Age: 40 Year
  Sex: Female

DRUGS (7)
  1. HUMIRA [Suspect]
     Indication: CROHN^S DISEASE
     Dates: start: 20130401
  2. XANAX [Concomitant]
     Indication: ANXIETY
     Route: 048
  3. PROMETHAZINE [Concomitant]
     Indication: NAUSEA
     Route: 048
  4. ALBUTEROL INHALER [Concomitant]
     Indication: ASTHMA
  5. RANITIDINE [Concomitant]
     Indication: GASTROOESOPHAGEAL REFLUX DISEASE
  6. TYLENOL [Concomitant]
     Indication: FIBROMYALGIA
  7. IBUPROFEN [Concomitant]
     Indication: FIBROMYALGIA

REACTIONS (3)
  - Fatigue [Recovering/Resolving]
  - Nausea [Recovered/Resolved]
  - Injection site pain [Recovered/Resolved]
